FAERS Safety Report 5761701-6 (Version None)
Quarter: 2008Q2

REPORT INFORMATION
  Report Type: 
  Country: None (occurrence: None)
  Receive Date: 20080602
  Receipt Date: 20080521
  Transmission Date: 20081010
  Serious: Yes (Hospitalization)
  Sender: FDA-Public Use
  Company Number: 83107

PATIENT
  Sex: Male

DRUGS (1)
  1. EQUATE ULTRA STRENGTH RUB/PERRIGO [Suspect]
     Indication: MUSCLE SPASMS
     Dosage: TOPICALLY
     Route: 061
     Dates: start: 20050301

REACTIONS (11)
  - ABASIA [None]
  - ANXIETY [None]
  - APPLICATION SITE BURN [None]
  - CAUSTIC INJURY [None]
  - ERYTHEMA [None]
  - HEADACHE [None]
  - MUSCLE SPASMS [None]
  - PAIN [None]
  - PAIN IN EXTREMITY [None]
  - SKIN GRAFT [None]
  - SWELLING [None]
